FAERS Safety Report 7220165-6 (Version None)
Quarter: 2011Q1

REPORT INFORMATION
  Report Type: 
  Country: None (occurrence: None)
  Receive Date: 20110111
  Receipt Date: 20110105
  Transmission Date: 20110831
  Serious: Yes (Other)
  Sender: FDA-Public Use
  Company Number: CA-JNJFOC-20110101412

PATIENT
  Sex: Female
  Weight: 60.4 kg

DRUGS (3)
  1. SYNTHROID [Concomitant]
  2. REMICADE [Suspect]
     Indication: CROHN'S DISEASE
     Route: 042
  3. PREDNISONE [Concomitant]

REACTIONS (1)
  - CATARACT OPERATION [None]
